FAERS Safety Report 9915673 (Version 1)
Quarter: 2014Q1

REPORT INFORMATION
  Report Type: Spontaneous
  Country: DE (occurrence: None)
  Receive Date: 20140212
  Receipt Date: 20140212
  Transmission Date: 20141002
  Serious: Yes (Hospitalization)
  Sender: FDA-Public Use
  Company Number: 2167482

PATIENT
  Age: 41 Year
  Sex: Female

DRUGS (3)
  1. GEMCITABINE HYDROCHLORIDE [Suspect]
     Indication: LUNG ADENOCARCINOMA
  2. BEVACIZUMAB [Suspect]
     Indication: LUNG ADENOCARCINOMA
  3. CISPLATIN [Suspect]
     Indication: LUNG ADENOCARCINOMA

REACTIONS (2)
  - Posterior reversible encephalopathy syndrome [None]
  - Drug ineffective [None]
